FAERS Safety Report 6722363-4 (Version None)
Quarter: 2010Q2

REPORT INFORMATION
  Report Type: 
  Country: None (occurrence: None)
  Receive Date: 20100512
  Receipt Date: 20100503
  Transmission Date: 20101027
  Serious: No
  Sender: FDA-Public Use
  Company Number: US-B.I. PHARMACEUTICALS,INC./RIDGEFIELD-2010-BP-03750BP

PATIENT
  Sex: Female

DRUGS (4)
  1. SPIRIVA [Suspect]
     Indication: BRONCHIECTASIS
     Dosage: 18 MCG
     Route: 055
     Dates: start: 20100316
  2. HYZAAR [Concomitant]
     Indication: HYPERTENSION
  3. NORVASC [Concomitant]
     Indication: HYPERTENSION
  4. ASPIRIN [Concomitant]
     Indication: PROPHYLAXIS

REACTIONS (5)
  - ASTHENOPIA [None]
  - CONSTIPATION [None]
  - DYSPNOEA [None]
  - NASOPHARYNGITIS [None]
  - URINE OUTPUT DECREASED [None]
